FAERS Safety Report 25266794 (Version 2)
Quarter: 2025Q2

REPORT INFORMATION
  Report Type: Spontaneous
  Country: US (occurrence: US)
  Receive Date: 20250505
  Receipt Date: 20250515
  Transmission Date: 20250716
  Serious: Yes (Life-Threatening, Hospitalization)
  Sender: TEVA
  Company Number: US-TEVA-VS-3327308

PATIENT
  Age: 56 Year
  Sex: Male

DRUGS (2)
  1. PREDNISONE [Suspect]
     Active Substance: PREDNISONE
     Indication: Dermatomyositis
     Route: 065
  2. MYCOPHENOLATE MOFETIL [Suspect]
     Active Substance: MYCOPHENOLATE MOFETIL
     Indication: Dermatomyositis
     Route: 065

REACTIONS (6)
  - Gastric perforation [Recovering/Resolving]
  - Acute kidney injury [Unknown]
  - Cardiac arrest [Unknown]
  - Pneumoperitoneum [Recovering/Resolving]
  - Septic shock [Unknown]
  - Respiratory failure [Unknown]
